FAERS Safety Report 7305559-2 (Version None)
Quarter: 2011Q1

REPORT INFORMATION
  Report Type: 
  Country: None (occurrence: None)
  Receive Date: 20110222
  Receipt Date: 20110216
  Transmission Date: 20110831
  Serious: Yes (Death, Other)
  Sender: FDA-Public Use
  Company Number: FR-GENZYME-FLUD-1000727

PATIENT
  Age: 52 Year
  Sex: Male

DRUGS (2)
  1. FLUDARA [Suspect]
     Indication: BONE MARROW CONDITIONING REGIMEN
     Dosage: UNK
     Route: 065
  2. BUSULFAN [Suspect]
     Indication: BONE MARROW CONDITIONING REGIMEN
     Dosage: UNK
     Route: 065

REACTIONS (3)
  - PANCYTOPENIA [None]
  - DYSPNOEA [None]
  - NEOPLASM MALIGNANT [None]
